FAERS Safety Report 8882179 (Version 3)
Quarter: 2014Q1

REPORT INFORMATION
  Report Type: Spontaneous
  Country: US (occurrence: US)
  Receive Date: 20121102
  Receipt Date: 20140326
  Transmission Date: 20141002
  Serious: Yes (Hospitalization, Disabling, Other)
  Sender: FDA-Public Use
  Company Number: US-009507513-1210USA010325

PATIENT
  Sex: Female

DRUGS (6)
  1. FOSAMAX [Suspect]
     Indication: OSTEOPOROSIS
     Dosage: 70 MG, UNK
     Route: 048
     Dates: start: 20020211, end: 200802
  2. FOSAMAX PLUS D [Suspect]
     Indication: OSTEOPOROSIS
     Dosage: 70 MG/2800IU, UNK
     Route: 048
     Dates: start: 20061120, end: 200712
  3. ALENDRONATE SODIUM [Suspect]
     Indication: OSTEOPOROSIS
     Dosage: 70 MG, UNK
     Route: 048
     Dates: start: 20080217, end: 20110531
  4. CLARITIN-D [Concomitant]
     Indication: HYPERSENSITIVITY
     Dosage: UNK
     Dates: start: 200104, end: 200104
  5. NASONEX [Concomitant]
     Indication: HYPERSENSITIVITY
     Dosage: UNK
     Dates: start: 200112, end: 201109
  6. NASACORT [Concomitant]
     Indication: HYPERSENSITIVITY
     Dosage: UNK
     Dates: start: 200211, end: 200809

REACTIONS (23)
  - Femoral neck fracture [Unknown]
  - Hip arthroplasty [Unknown]
  - Low turnover osteopathy [Not Recovered/Not Resolved]
  - Femur fracture [Not Recovered/Not Resolved]
  - Stress fracture [Not Recovered/Not Resolved]
  - Cardiac pacemaker insertion [Unknown]
  - Fall [Unknown]
  - Spinal compression fracture [Unknown]
  - Anxiety [Unknown]
  - Pain [Unknown]
  - Cough [Unknown]
  - Infection [Unknown]
  - Oral herpes [Unknown]
  - Inflammation [Unknown]
  - Hypothyroidism [Unknown]
  - Bronchitis [Unknown]
  - Adverse event [Unknown]
  - Intervertebral disc degeneration [Unknown]
  - Fall [Unknown]
  - Osteoarthritis [Unknown]
  - Spinal column stenosis [Unknown]
  - Osteoarthritis [Unknown]
  - Hypertension [Unknown]
